FAERS Safety Report 9087737 (Version 1)
Quarter: 2013Q1

REPORT INFORMATION
  Report Type: Spontaneous
  Country: JP (occurrence: JP)
  Receive Date: 20130218
  Receipt Date: 20130218
  Transmission Date: 20140127
  Serious: Yes (Hospitalization)
  Sender: FDA-Public Use
  Company Number: PHHY2013JP006911

PATIENT
  Age: 77 Year
  Sex: Male

DRUGS (14)
  1. CUBICIN [Suspect]
     Indication: ARTHRITIS INFECTIVE
     Dosage: 350 MG, QD
     Route: 041
     Dates: start: 20121121, end: 20121204
  2. CUBICIN [Suspect]
     Dosage: 420 MG, QD
     Route: 041
     Dates: start: 20121205, end: 20121217
  3. CUBICIN [Suspect]
     Dosage: 560 MG, QD
     Route: 041
     Dates: start: 20121218, end: 20121224
  4. RIFAMPICIN [Suspect]
     Indication: ARTHRITIS INFECTIVE
     Dosage: 300 MG, BID
     Route: 048
     Dates: start: 20121206, end: 20121224
  5. ROZEREM [Concomitant]
     Route: 048
  6. BONALON [Concomitant]
     Route: 048
  7. OPALMON [Concomitant]
     Route: 048
  8. TAKEPRON [Concomitant]
     Route: 048
  9. ZYLORIC [Concomitant]
     Route: 048
  10. BAYASPIRIN [Concomitant]
     Route: 048
  11. LASIX [Concomitant]
     Route: 048
  12. BLOPRESS [Concomitant]
     Route: 048
  13. LIPIDIL [Concomitant]
     Route: 048
  14. KINEDAK [Concomitant]
     Route: 048

REACTIONS (2)
  - Eosinophilic pneumonia [Recovered/Resolved]
  - Pyrexia [Recovering/Resolving]
